FAERS Safety Report 4917470-2 (Version None)
Quarter: 2006Q1

REPORT INFORMATION
  Report Type: 
  Country: None (occurrence: None)
  Receive Date: 20060221
  Receipt Date: 20050921
  Transmission Date: 20060701
  Serious: Yes (Hospitalization)
  Sender: FDA-Public Use
  Company Number: US-MERCK-0509USA03423

PATIENT
  Age: 45 Year
  Sex: Male
  Weight: 102 kg

DRUGS (6)
  1. VIOXX [Suspect]
     Indication: MONARTHRITIS
     Route: 048
     Dates: start: 20030917, end: 20031013
  2. VIOXX [Suspect]
     Route: 048
     Dates: start: 20031113, end: 20031201
  3. HC TUSSIVE [Concomitant]
     Route: 065
  4. LEVAQUIN [Concomitant]
     Route: 065
  5. AUGMENTIN '125' [Concomitant]
     Route: 065
  6. VITAMINS (UNSPECIFIED) [Concomitant]
     Route: 065

REACTIONS (4)
  - BLOOD CHOLESTEROL INCREASED [None]
  - CEREBROVASCULAR ACCIDENT [None]
  - ESSENTIAL HYPERTENSION [None]
  - OSTEOARTHRITIS [None]
